FAERS Safety Report 14023504 (Version 2)
Quarter: 2017Q4

REPORT INFORMATION
  Report Type: Spontaneous
  Country: CH (occurrence: CH)
  Receive Date: 20170929
  Receipt Date: 20171106
  Transmission Date: 20180321
  Serious: Yes (Other)
  Sender: FDA-Public Use
  Company Number: CH-TEVA-809783ISR

PATIENT
  Sex: Female

DRUGS (1)
  1. MEMANTIN-MEPHA [Suspect]
     Active Substance: MEMANTINE HYDROCHLORIDE
     Indication: DEMENTIA ALZHEIMER^S TYPE
     Dosage: 10 MILLIGRAM DAILY; ONGOING
     Route: 065

REACTIONS (4)
  - Logorrhoea [Unknown]
  - Psychomotor hyperactivity [Unknown]
  - Dementia Alzheimer^s type [Unknown]
  - Off label use [Unknown]

NARRATIVE: CASE EVENT DATE: 2017
